FAERS Safety Report 6330552-6 (Version None)
Quarter: 2009Q3

REPORT INFORMATION
  Report Type: 
  Country: None (occurrence: None)
  Receive Date: 20090826
  Receipt Date: 20090826
  Transmission Date: 20100115
  Serious: Yes (Hospitalization)
  Sender: FDA-Public Use
  Company Number: None

PATIENT
  Age: 24 Year
  Sex: Female
  Weight: 58.0604 kg

DRUGS (1)
  1. ALLI [Suspect]
     Indication: WEIGHT DECREASED
     Dosage: 60 MG ONCE DAILY PO
     Route: 048
     Dates: start: 20080120, end: 20080428

REACTIONS (5)
  - ABDOMINAL PAIN UPPER [None]
  - EATING DISORDER [None]
  - FOOD POISONING [None]
  - IMPAIRED WORK ABILITY [None]
  - INSOMNIA [None]
